FAERS Safety Report 12128227 (Version 4)
Quarter: 2016Q3

REPORT INFORMATION
  Report Type: Spontaneous
  Country: FR (occurrence: FR)
  Receive Date: 20160229
  Receipt Date: 20160720
  Transmission Date: 20161109
  Serious: Yes (Hospitalization)
  Sender: FDA-Public Use
  Company Number: FR-SA-2016SA039010

PATIENT
  Age: 58 Year
  Sex: Female

DRUGS (5)
  1. LANTUS [Suspect]
     Active Substance: INSULIN GLARGINE
     Indication: POISONING DELIBERATE
     Route: 058
     Dates: start: 20151023
  2. PRAZEPAM [Suspect]
     Active Substance: PRAZEPAM
     Indication: POISONING DELIBERATE
     Route: 048
     Dates: start: 20151023
  3. PAROXETINE. [Suspect]
     Active Substance: PAROXETINE
     Indication: POISONING DELIBERATE
     Route: 048
     Dates: start: 20151023
  4. DEPAKOTE [Suspect]
     Active Substance: DIVALPROEX SODIUM
     Indication: POISONING DELIBERATE
     Route: 048
     Dates: start: 20151023
  5. ALPRAZOLAM. [Suspect]
     Active Substance: ALPRAZOLAM
     Indication: POISONING DELIBERATE
     Route: 048
     Dates: start: 20151023

REACTIONS (5)
  - Hyperlactacidaemia [Recovered/Resolved]
  - Antipsychotic drug level increased [Recovered/Resolved]
  - Coma [Recovered/Resolved]
  - Hyperammonaemia [Recovered/Resolved]
  - Hypoglycaemia [Recovered/Resolved]

NARRATIVE: CASE EVENT DATE: 20151023
